FAERS Safety Report 8031178-9 (Version None)
Quarter: 2012Q1

REPORT INFORMATION
  Report Type: 
  Country: None (occurrence: None)
  Receive Date: 20120109
  Receipt Date: 20120102
  Transmission Date: 20120608
  Serious: Yes (Death, Hospitalization)
  Sender: FDA-Public Use
  Company Number: DE-ACTELION-A-US2011-53072

PATIENT

DRUGS (2)
  1. VENTAVIS [Suspect]
     Indication: PULMONARY ARTERIAL HYPERTENSION
     Dosage: 5.0 UG, Q4HR
     Route: 055
     Dates: start: 20110711
  2. ADCIRCA [Concomitant]

REACTIONS (3)
  - CARDIAC FAILURE [None]
  - DEATH [None]
  - RENAL FAILURE [None]
